FAERS Safety Report 5385854-7 (Version None)
Quarter: 2007Q3

REPORT INFORMATION
  Report Type: 
  Country: None (occurrence: None)
  Receive Date: 20070712
  Receipt Date: 20070703
  Transmission Date: 20080115
  Serious: Yes (Life-Threatening)
  Sender: FDA-Public Use
  Company Number: GB-ELI_LILLY_AND_COMPANY-GB200707000524

PATIENT
  Sex: Female

DRUGS (5)
  1. YENTREVE [Suspect]
     Indication: STRESS URINARY INCONTINENCE
     Dosage: 40 MG, UNK
     Route: 048
     Dates: start: 20070619, end: 20070619
  2. MICROGYNON [Concomitant]
     Indication: CONTRACEPTION
     Dosage: 30 UG, UNK
     Route: 048
     Dates: start: 20060914
  3. NEOCLARITYN [Concomitant]
     Indication: SEASONAL ALLERGY
     Dosage: 5 MG, UNK
     Route: 048
     Dates: start: 20040308
  4. SERETIDE [Concomitant]
     Indication: ASTHMA
     Route: 055
     Dates: start: 20070605
  5. VENTOLIN /00139502/ [Concomitant]
     Indication: ASTHMA
     Dosage: 100 UG, UNK
     Route: 055
     Dates: start: 20050831

REACTIONS (2)
  - DYSPNOEA [None]
  - SWELLING FACE [None]
